FAERS Safety Report 6271390-2 (Version None)
Quarter: 2009Q3

REPORT INFORMATION
  Report Type: 
  Country: None (occurrence: None)
  Receive Date: 20090717
  Receipt Date: 20090706
  Transmission Date: 20100115
  Serious: Yes (Hospitalization)
  Sender: FDA-Public Use
  Company Number: GB-ROCHE-642803

PATIENT
  Age: 78 Year
  Sex: Female
  Weight: 53.4 kg

DRUGS (3)
  1. XELODA [Suspect]
     Indication: COLON CANCER
     Dosage: INDICATION ALSO MENTIONED AS : CHEMOTHERAPY
     Route: 048
     Dates: start: 20090511
  2. OXALIPLATIN [Suspect]
     Indication: COLON CANCER
     Dosage: INDICATION ALSO MENTIONED AS : CHEMOTHERAPY
     Route: 065
     Dates: start: 20090511
  3. FERROUS SULFATE TAB [Concomitant]
     Route: 065

REACTIONS (4)
  - DYSARTHRIA [None]
  - FACIAL PALSY [None]
  - NERVOUS SYSTEM DISORDER [None]
  - TRANSIENT ISCHAEMIC ATTACK [None]
